FAERS Safety Report 13079820 (Version 2)
Quarter: 2017Q1

REPORT INFORMATION
  Report Type: Spontaneous
  Country: IT (occurrence: IT)
  Receive Date: 20170103
  Receipt Date: 20170130
  Transmission Date: 20170428
  Serious: Yes (Hospitalization, Other)
  Sender: FDA-Public Use
  Company Number: IT-BRISTOL-MYERS SQUIBB COMPANY-BMS-2016-109758

PATIENT
  Age: 76 Year
  Sex: Female

DRUGS (1)
  1. COUMADIN [Suspect]
     Active Substance: WARFARIN SODIUM
     Indication: ANTICOAGULANT THERAPY
     Dosage: UNK UNK, QD
     Route: 048

REACTIONS (9)
  - Anaemia [Recovering/Resolving]
  - Haematoma evacuation [Unknown]
  - Contusion [Unknown]
  - Vertigo [Unknown]
  - Muscle haemorrhage [Unknown]
  - Lung disorder [Unknown]
  - Chronic kidney disease [Recovering/Resolving]
  - Haematoma [Unknown]
  - Laceration [Unknown]

NARRATIVE: CASE EVENT DATE: 20131231
